FAERS Safety Report 12954451 (Version 6)
Quarter: 2022Q1

REPORT INFORMATION
  Report Type: Other
  Country: US (occurrence: None)
  Receive Date: 20161118
  Receipt Date: 20220217
  Transmission Date: 20220423
  Serious: Yes (Other)
  Sender: FDA-Public Use
  Company Number: US-ROCHE-1851506

PATIENT

DRUGS (4)
  1. OBINUTUZUMAB [Suspect]
     Active Substance: OBINUTUZUMAB
     Indication: Chronic lymphocytic leukaemia
     Dosage: OBINUTUZUMAB WAS ADMINISTERED INTRAVENOUSLY AS FOLLOWS: 100 MG ON DAY 1, 900 MG ON DAY 2, 1,000 MG O
     Route: 042
  2. IBRUTINIB [Suspect]
     Active Substance: IBRUTINIB
     Indication: Chronic lymphocytic leukaemia
     Dosage: (420 MG ONCE DAILY-STARTED ONE HOUR BEFORE ANTIBODY INFUSION) ADMINISTERED UNTIL DISEASE PROGRESSION
     Route: 048
  3. ACYCLOVIR [Concomitant]
     Active Substance: ACYCLOVIR
     Route: 065
  4. ALLOPURINOL [Concomitant]
     Active Substance: ALLOPURINOL

REACTIONS (12)
  - Thrombocytopenia [Unknown]
  - Anaemia [Unknown]
  - Neutropenia [Unknown]
  - Lower gastrointestinal haemorrhage [Recovered/Resolved]
  - Hyperglycaemia [Unknown]
  - Diarrhoea [Unknown]
  - Infection [Unknown]
  - Hyponatraemia [Unknown]
  - Hypocalcaemia [Unknown]
  - Hyperkalaemia [Unknown]
  - Atrial fibrillation [Unknown]
  - Aspartate aminotransferase increased [Unknown]
